FAERS Safety Report 8609831-5 (Version None)
Quarter: 2012Q3

REPORT INFORMATION
  Report Type: 
  Country: None (occurrence: None)
  Receive Date: 20120821
  Receipt Date: 20120619
  Transmission Date: 20120928
  Serious: No
  Sender: FDA-Public Use
  Company Number: US-009507513-1207USA010953

PATIENT

DRUGS (3)
  1. MIRALAX [Suspect]
     Dosage: 17 G, ONCE
     Route: 048
     Dates: start: 20120618
  2. MIRALAX [Suspect]
     Dosage: 34 G, ONCE
     Route: 048
     Dates: start: 20120618
  3. MIRALAX [Suspect]
     Indication: PRODUCT USED FOR UNKNOWN INDICATION
     Dosage: 34 G, QD
     Route: 048

REACTIONS (6)
  - INAPPROPRIATE SCHEDULE OF DRUG ADMINISTRATION [None]
  - HEADACHE [None]
  - ASTHENIA [None]
  - OVERDOSE [None]
  - THERAPEUTIC PRODUCT INEFFECTIVE [None]
  - ABDOMINAL PAIN UPPER [None]
